FAERS Safety Report 12666184 (Version 1)
Quarter: 2016Q3

REPORT INFORMATION
  Report Type: Spontaneous
  Country: US (occurrence: US)
  Receive Date: 20160818
  Receipt Date: 20160818
  Transmission Date: 20161109
  Serious: No
  Sender: FDA-Public Use
  Company Number: US-JAZZ-2016-US-005905

PATIENT
  Age: 41 Year
  Sex: Female

DRUGS (14)
  1. XYREM [Suspect]
     Active Substance: SODIUM OXYBATE
     Indication: NARCOLEPSY
     Dosage: 2.25 G, BID
     Route: 048
     Dates: start: 201603, end: 201603
  2. TYLENOL EXTRA STRENGTH [Concomitant]
     Active Substance: ACETAMINOPHEN
  3. FERROUS SULFATE. [Concomitant]
     Active Substance: FERROUS SULFATE
  4. MOTRIN [Concomitant]
     Active Substance: IBUPROFEN
  5. VITAMIN B12 [Concomitant]
     Active Substance: CYANOCOBALAMIN
  6. XYREM [Suspect]
     Active Substance: SODIUM OXYBATE
     Dosage: 3 G, BID
     Route: 048
     Dates: start: 201603
  7. VITAMIN C [Concomitant]
     Active Substance: ASCORBIC ACID
  8. VENLAFAXINE [Concomitant]
     Active Substance: VENLAFAXINE HYDROCHLORIDE
  9. OMEPRAZOLE. [Concomitant]
     Active Substance: OMEPRAZOLE
  10. DULOXETINE. [Concomitant]
     Active Substance: DULOXETINE
  11. NAPROXEN. [Concomitant]
     Active Substance: NAPROXEN
  12. VITAMIN D [Concomitant]
     Active Substance: CHOLECALCIFEROL
  13. ORTHO TRI CYCLEN LO [Concomitant]
     Active Substance: ETHINYL ESTRADIOL\NORGESTIMATE
  14. TAZTIA XT [Concomitant]
     Active Substance: DILTIAZEM HYDROCHLORIDE

REACTIONS (3)
  - Somnolence [Unknown]
  - Confusional state [Unknown]
  - Inappropriate schedule of drug administration [Unknown]

NARRATIVE: CASE EVENT DATE: 201603
